FAERS Safety Report 6575415-6 (Version None)
Quarter: 2010Q1

REPORT INFORMATION
  Report Type: 
  Country: None (occurrence: None)
  Receive Date: 20100209
  Receipt Date: 20100201
  Transmission Date: 20100710
  Serious: Yes (Death, Hospitalization)
  Sender: FDA-Public Use
  Company Number: US-ROCHE-684105

PATIENT
  Sex: Male
  Weight: 42.6 kg

DRUGS (12)
  1. BEVACIZUMAB [Suspect]
     Route: 042
     Dates: start: 20091124
  2. PACLITAXEL [Suspect]
     Route: 042
     Dates: start: 20091124
  3. CARBOPLATIN [Suspect]
     Dosage: DOSE: 6 AUC
     Route: 042
     Dates: start: 20091124
  4. ZOFRAN [Concomitant]
     Indication: VOMITING
  5. ZOMETA [Concomitant]
     Indication: BONE PAIN
     Dates: start: 20090818
  6. FERRLECIT [Concomitant]
  7. ZETIA [Concomitant]
     Indication: HYPERTENSION
  8. CRESTOR [Concomitant]
     Indication: HYPERTENSION
  9. COREG [Concomitant]
     Indication: HYPERTENSION
  10. METFORMIN HCL [Concomitant]
  11. COLACE [Concomitant]
     Indication: LAXATIVE SUPPORTIVE CARE
     Dates: start: 20090814
  12. IMODIUM [Concomitant]

REACTIONS (4)
  - ANAEMIA [None]
  - DEATH [None]
  - DEHYDRATION [None]
  - RENAL FAILURE ACUTE [None]
